FAERS Safety Report 9034847 (Version 1)
Quarter: 2013Q1

REPORT INFORMATION
  Report Type: Other
  Country: US (occurrence: US)
  Receive Date: 20130128
  Receipt Date: 20130128
  Transmission Date: 20140127
  Serious: Yes (Death)
  Sender: FDA-Public Use
  Company Number: US-FRI-1000042071

PATIENT
  Age: 53 Year
  Sex: Female

DRUGS (4)
  1. CITALOPRAM [Suspect]
  2. FENTANYL [Suspect]
  3. CYCLOBENZAPRINE [Suspect]
  4. TRIAZOLAM [Suspect]

REACTIONS (1)
  - Death [Fatal]
